FAERS Safety Report 4459351-7 (Version None)
Quarter: 2004Q3

REPORT INFORMATION
  Report Type: 
  Country: None (occurrence: None)
  Receive Date: 20040923
  Receipt Date: 20040914
  Transmission Date: 20050211
  Serious: Yes (Other)
  Sender: FDA-Public Use
  Company Number: 2004-09-1051

PATIENT
  Age: 43 Year
  Sex: Female

DRUGS (4)
  1. NASONEX [Suspect]
     Dosage: NASAL SPRAY
     Dates: start: 20030101, end: 20040901
  2. CELESTONE CREAM [Suspect]
     Dosage: TOPICAL
     Route: 061
  3. CELEBREX [Concomitant]
  4. ANTI-INFLAMMATORY AGENT (NOS) [Concomitant]

REACTIONS (1)
  - CATARACT [None]
